FAERS Safety Report 8421124-8 (Version None)
Quarter: 2012Q2

REPORT INFORMATION
  Report Type: 
  Country: None (occurrence: None)
  Receive Date: 20120608
  Receipt Date: 20120530
  Transmission Date: 20120825
  Serious: Yes (Hospitalization)
  Sender: FDA-Public Use
  Company Number: JP-VERTEX PHARMACEUTICALS INC.-AE-2012-004554

PATIENT
  Age: 73 Year
  Sex: Female

DRUGS (16)
  1. DIFLUNISAL [Concomitant]
     Route: 048
  2. TELAVIC (TELAPREVIR) [Suspect]
     Indication: HEPATITIS C
     Route: 048
     Dates: start: 20120202, end: 20120214
  3. PEG-INTRON [Concomitant]
     Indication: HEPATITIS C
     Route: 051
     Dates: start: 20120202, end: 20120209
  4. FAMOTIDINE [Concomitant]
     Route: 048
  5. RIBAVIRIN [Concomitant]
     Route: 048
     Dates: start: 20120307, end: 20120313
  6. ONEALFA [Concomitant]
     Route: 048
  7. PEG-INTRON [Concomitant]
     Route: 051
     Dates: start: 20120223, end: 20120229
  8. GASMOTIN [Concomitant]
     Route: 048
     Dates: start: 20120214
  9. PEG-INTRON [Concomitant]
     Route: 051
     Dates: start: 20120307, end: 20120313
  10. RIBAVIRIN [Concomitant]
     Indication: HEPATITIS C
     Route: 048
     Dates: start: 20120202, end: 20120214
  11. ZOLPIDEM [Concomitant]
     Route: 048
     Dates: start: 20120328
  12. PEG-INTRON [Concomitant]
     Route: 051
     Dates: start: 20120301, end: 20120306
  13. RIBAVIRIN [Concomitant]
     Route: 048
     Dates: start: 20120215, end: 20120306
  14. BLODPRESS [Concomitant]
     Route: 048
  15. ALLOPURINOL [Concomitant]
     Route: 048
     Dates: start: 20120206
  16. DOMPERIDONE [Concomitant]
     Route: 048
     Dates: start: 20120215

REACTIONS (2)
  - DECREASED APPETITE [None]
  - ANAEMIA [None]
